FAERS Safety Report 4378402-1 (Version None)
Quarter: 2004Q2

REPORT INFORMATION
  Report Type: 
  Country: None (occurrence: None)
  Receive Date: 20040616
  Receipt Date: 20040611
  Transmission Date: 20050107
  Serious: Yes (Hospitalization)
  Sender: FDA-Public Use
  Company Number: DE-MERCK-0406DEU00079

PATIENT

DRUGS (2)
  1. COZAAR [Suspect]
     Route: 048
     Dates: start: 20020101
  2. PHENPROCOUMON [Suspect]
     Route: 048

REACTIONS (2)
  - DRUG INTERACTION [None]
  - INTESTINAL HAEMORRHAGE [None]
